FAERS Safety Report 24797300 (Version 1)
Quarter: 2025Q1

REPORT INFORMATION
  Report Type: Spontaneous
  Country: US (occurrence: US)
  Receive Date: 20250102
  Receipt Date: 20250102
  Transmission Date: 20250409
  Serious: Yes (Other)
  Sender: BRISTOL-MYERS SQUIBB COMPANY
  Company Number: US-BRISTOL-MYERS SQUIBB COMPANY-2025-000311

PATIENT
  Age: 65 Year
  Sex: Male
  Weight: 78.93 kg

DRUGS (1)
  1. REVLIMID [Suspect]
     Active Substance: LENALIDOMIDE
     Indication: Prostate cancer
     Dosage: 3 WEEKS ON 1 WEEK OFF
     Route: 048

REACTIONS (3)
  - Diarrhoea [Recovering/Resolving]
  - Cataract [Unknown]
  - Off label use [Unknown]
